FAERS Safety Report 7948357-9 (Version None)
Quarter: 2011Q4

REPORT INFORMATION
  Report Type: 
  Country: None (occurrence: None)
  Receive Date: 20111123
  Receipt Date: 20111107
  Transmission Date: 20120403
  Serious: Yes (Death)
  Sender: FDA-Public Use
  Company Number: 2011DZ0329

PATIENT
  Age: 7 Month
  Sex: Female

DRUGS (2)
  1. ABDOMINAL DISTENSION [Concomitant]
  2. ORFADIN [Suspect]
     Indication: TYROSINAEMIA
     Dosage: 0.5 MG (0.5 MG, 1 IN 1 D), PER ORAL
     Route: 048
     Dates: start: 20111017, end: 20111017

REACTIONS (1)
  - DEATH [None]
